FAERS Safety Report 25679142 (Version 2)
Quarter: 2025Q3

REPORT INFORMATION
  Report Type: Spontaneous
  Country: CA (occurrence: CA)
  Receive Date: 20250814
  Receipt Date: 20250819
  Transmission Date: 20251020
  Serious: Yes (Life-Threatening, Hospitalization, Disabling, Other)
  Sender: BRISTOL-MYERS SQUIBB COMPANY
  Company Number: CA-BRISTOL-MYERS SQUIBB COMPANY-2025-110573

PATIENT
  Age: 40 Year
  Sex: Female
  Weight: 90 kg

DRUGS (435)
  1. ORENCIA [Suspect]
     Active Substance: ABATACEPT
     Indication: Rheumatoid arthritis
  2. ORENCIA [Suspect]
     Active Substance: ABATACEPT
  3. ORENCIA [Suspect]
     Active Substance: ABATACEPT
  4. ORENCIA [Suspect]
     Active Substance: ABATACEPT
  5. ORENCIA [Suspect]
     Active Substance: ABATACEPT
  6. ORENCIA [Suspect]
     Active Substance: ABATACEPT
  7. ORENCIA [Suspect]
     Active Substance: ABATACEPT
  8. ORENCIA [Suspect]
     Active Substance: ABATACEPT
  9. ORENCIA [Suspect]
     Active Substance: ABATACEPT
  10. ORENCIA [Suspect]
     Active Substance: ABATACEPT
  11. ORENCIA [Suspect]
     Active Substance: ABATACEPT
  12. ORENCIA [Suspect]
     Active Substance: ABATACEPT
  13. ORENCIA [Suspect]
     Active Substance: ABATACEPT
  14. ORENCIA [Suspect]
     Active Substance: ABATACEPT
  15. ORENCIA [Suspect]
     Active Substance: ABATACEPT
  16. ORENCIA [Suspect]
     Active Substance: ABATACEPT
  17. ORENCIA [Suspect]
     Active Substance: ABATACEPT
  18. ORENCIA [Suspect]
     Active Substance: ABATACEPT
  19. ORENCIA [Suspect]
     Active Substance: ABATACEPT
  20. ORENCIA [Suspect]
     Active Substance: ABATACEPT
  21. ORENCIA [Suspect]
     Active Substance: ABATACEPT
  22. ORENCIA [Suspect]
     Active Substance: ABATACEPT
  23. ORENCIA [Suspect]
     Active Substance: ABATACEPT
  24. ORENCIA [Suspect]
     Active Substance: ABATACEPT
  25. ORENCIA [Suspect]
     Active Substance: ABATACEPT
  26. ORENCIA [Suspect]
     Active Substance: ABATACEPT
  27. ORENCIA [Suspect]
     Active Substance: ABATACEPT
     Indication: Rheumatoid arthritis
     Route: 058
  28. ORENCIA [Suspect]
     Active Substance: ABATACEPT
     Route: 058
  29. ORENCIA [Suspect]
     Active Substance: ABATACEPT
     Route: 058
  30. ORENCIA [Suspect]
     Active Substance: ABATACEPT
     Route: 058
  31. TRIAMCINOLONE ACETONIDE [Suspect]
     Active Substance: TRIAMCINOLONE ACETONIDE
     Indication: Rheumatoid arthritis
     Route: 013
  32. ACETAMINOPHEN [Concomitant]
     Active Substance: ACETAMINOPHEN
     Indication: Rheumatoid arthritis
  33. ACETAMINOPHEN [Concomitant]
     Active Substance: ACETAMINOPHEN
  34. ACETAMINOPHEN [Concomitant]
     Active Substance: ACETAMINOPHEN
  35. ACETAMINOPHEN [Concomitant]
     Active Substance: ACETAMINOPHEN
  36. ACETAMINOPHEN AND CODEINE [Concomitant]
     Active Substance: ACETAMINOPHEN\CODEINE PHOSPHATE
     Indication: Rheumatoid arthritis
  37. ACETAMINOPHEN AND CODEINE [Concomitant]
     Active Substance: ACETAMINOPHEN\CODEINE PHOSPHATE
  38. ACTEMRA [Concomitant]
     Active Substance: TOCILIZUMAB
     Indication: Rheumatoid arthritis
     Route: 040
  39. ACTEMRA [Concomitant]
     Active Substance: TOCILIZUMAB
     Route: 040
  40. ACTEMRA [Concomitant]
     Active Substance: TOCILIZUMAB
     Route: 040
  41. ACTEMRA [Concomitant]
     Active Substance: TOCILIZUMAB
     Route: 040
  42. ACTEMRA [Concomitant]
     Active Substance: TOCILIZUMAB
     Route: 058
  43. ACTEMRA [Concomitant]
     Active Substance: TOCILIZUMAB
     Route: 042
  44. ACTEMRA [Concomitant]
     Active Substance: TOCILIZUMAB
     Route: 061
  45. ACTEMRA [Concomitant]
     Active Substance: TOCILIZUMAB
     Route: 040
  46. ACTEMRA [Concomitant]
     Active Substance: TOCILIZUMAB
     Route: 042
  47. ACTEMRA [Concomitant]
     Active Substance: TOCILIZUMAB
     Route: 042
  48. ACTEMRA [Concomitant]
     Active Substance: TOCILIZUMAB
     Route: 040
  49. ACTEMRA [Concomitant]
     Active Substance: TOCILIZUMAB
     Route: 042
  50. ACTEMRA [Concomitant]
     Active Substance: TOCILIZUMAB
     Route: 042
  51. ACTEMRA [Concomitant]
     Active Substance: TOCILIZUMAB
     Route: 042
  52. ACTEMRA [Concomitant]
     Active Substance: TOCILIZUMAB
     Route: 040
  53. ACTEMRA [Concomitant]
     Active Substance: TOCILIZUMAB
  54. ACTEMRA [Concomitant]
     Active Substance: TOCILIZUMAB
     Route: 058
  55. ACTEMRA [Concomitant]
     Active Substance: TOCILIZUMAB
     Route: 058
  56. ACTEMRA [Concomitant]
     Active Substance: TOCILIZUMAB
  57. ACTEMRA [Concomitant]
     Active Substance: TOCILIZUMAB
     Route: 058
  58. ACTEMRA [Concomitant]
     Active Substance: TOCILIZUMAB
     Route: 040
  59. ACTEMRA [Concomitant]
     Active Substance: TOCILIZUMAB
     Route: 016
  60. ACTEMRA [Concomitant]
     Active Substance: TOCILIZUMAB
     Route: 050
  61. ACTEMRA [Concomitant]
     Active Substance: TOCILIZUMAB
  62. ACTEMRA [Concomitant]
     Active Substance: TOCILIZUMAB
  63. ACTEMRA [Concomitant]
     Active Substance: TOCILIZUMAB
  64. ACTEMRA [Concomitant]
     Active Substance: TOCILIZUMAB
     Route: 016
  65. ACTEMRA [Concomitant]
     Active Substance: TOCILIZUMAB
     Route: 040
  66. ACTEMRA [Concomitant]
     Active Substance: TOCILIZUMAB
     Route: 041
  67. ACTEMRA [Concomitant]
     Active Substance: TOCILIZUMAB
     Route: 042
  68. ACTEMRA [Concomitant]
     Active Substance: TOCILIZUMAB
  69. ACTEMRA [Concomitant]
     Active Substance: TOCILIZUMAB
     Route: 058
  70. ACTEMRA [Concomitant]
     Active Substance: TOCILIZUMAB
     Route: 058
  71. ACTEMRA [Concomitant]
     Active Substance: TOCILIZUMAB
     Route: 058
  72. ADALIMUMAB [Concomitant]
     Active Substance: ADALIMUMAB
     Indication: Rheumatoid arthritis
     Route: 042
  73. ADALIMUMAB [Concomitant]
     Active Substance: ADALIMUMAB
     Route: 058
  74. ADALIMUMAB [Concomitant]
     Active Substance: ADALIMUMAB
     Route: 058
  75. ADALIMUMAB [Concomitant]
     Active Substance: ADALIMUMAB
     Route: 058
  76. ADALIMUMAB [Concomitant]
     Active Substance: ADALIMUMAB
     Route: 042
  77. ADALIMUMAB [Concomitant]
     Active Substance: ADALIMUMAB
     Route: 058
  78. AIMOVIG [Concomitant]
     Active Substance: ERENUMAB-AOOE
     Indication: Migraine
  79. AIMOVIG [Concomitant]
     Active Substance: ERENUMAB-AOOE
  80. AIMOVIG [Concomitant]
     Active Substance: ERENUMAB-AOOE
  81. AIMOVIG [Concomitant]
     Active Substance: ERENUMAB-AOOE
  82. ALENDRONATE SODIUM [Concomitant]
     Active Substance: ALENDRONATE SODIUM
     Indication: Rheumatoid arthritis
     Route: 016
  83. ALENDRONATE SODIUM [Concomitant]
     Active Substance: ALENDRONATE SODIUM
  84. ALENDRONATE SODIUM [Concomitant]
     Active Substance: ALENDRONATE SODIUM
  85. ALENDRONATE SODIUM [Concomitant]
     Active Substance: ALENDRONATE SODIUM
  86. ALENDRONATE SODIUM [Concomitant]
     Active Substance: ALENDRONATE SODIUM
     Route: 048
  87. ALENDRONATE SODIUM [Concomitant]
     Active Substance: ALENDRONATE SODIUM
     Route: 048
  88. PREDNISONE [Concomitant]
     Active Substance: PREDNISONE
     Indication: Rheumatoid arthritis
     Route: 048
  89. PREDNISONE [Concomitant]
     Active Substance: PREDNISONE
     Route: 048
  90. PREDNISONE [Concomitant]
     Active Substance: PREDNISONE
     Route: 048
  91. PREDNISONE [Concomitant]
     Active Substance: PREDNISONE
     Route: 048
  92. PREDNISONE [Concomitant]
     Active Substance: PREDNISONE
     Route: 048
  93. PREDNISONE [Concomitant]
     Active Substance: PREDNISONE
  94. PREDNISONE [Concomitant]
     Active Substance: PREDNISONE
     Route: 048
  95. PREDNISONE [Concomitant]
     Active Substance: PREDNISONE
     Route: 048
  96. PREDNISONE [Concomitant]
     Active Substance: PREDNISONE
     Route: 048
  97. ARAVA [Concomitant]
     Active Substance: LEFLUNOMIDE
     Indication: Rheumatoid arthritis
     Route: 048
  98. ARAVA [Concomitant]
     Active Substance: LEFLUNOMIDE
     Route: 048
  99. ARAVA [Concomitant]
     Active Substance: LEFLUNOMIDE
  100. ARAVA [Concomitant]
     Active Substance: LEFLUNOMIDE
     Route: 048
  101. ATOMOXETINE HYDROCHLORIDE [Concomitant]
     Active Substance: ATOMOXETINE HYDROCHLORIDE
     Indication: Migraine
  102. ATOMOXETINE HYDROCHLORIDE [Concomitant]
     Active Substance: ATOMOXETINE HYDROCHLORIDE
  103. ATOMOXETINE HYDROCHLORIDE [Concomitant]
     Active Substance: ATOMOXETINE HYDROCHLORIDE
  104. ATOMOXETINE HYDROCHLORIDE [Concomitant]
     Active Substance: ATOMOXETINE HYDROCHLORIDE
  105. ATOMOXETINE HYDROCHLORIDE [Concomitant]
     Active Substance: ATOMOXETINE HYDROCHLORIDE
  106. ATOMOXETINE HYDROCHLORIDE [Concomitant]
     Active Substance: ATOMOXETINE HYDROCHLORIDE
  107. AZATHIOPRINE SODIUM [Concomitant]
     Active Substance: AZATHIOPRINE SODIUM
     Indication: Rheumatoid arthritis
  108. AZATHIOPRINE SODIUM [Concomitant]
     Active Substance: AZATHIOPRINE SODIUM
  109. AZATHIOPRINE SODIUM [Concomitant]
     Active Substance: AZATHIOPRINE SODIUM
  110. AZATHIOPRINE SODIUM [Concomitant]
     Active Substance: AZATHIOPRINE SODIUM
  111. BERINERT [Concomitant]
     Active Substance: HUMAN C1-ESTERASE INHIBITOR
     Indication: Rheumatoid arthritis
  112. BERINERT [Concomitant]
     Active Substance: HUMAN C1-ESTERASE INHIBITOR
  113. BOTULINUM TOXIN TYPE A [Concomitant]
     Active Substance: BOTULINUM TOXIN TYPE A
     Indication: Product used for unknown indication
  114. BUTRANS [Concomitant]
     Active Substance: BUPRENORPHINE
     Indication: Product used for unknown indication
  115. BUTRANS [Concomitant]
     Active Substance: BUPRENORPHINE
  116. BUTRANS [Concomitant]
     Active Substance: BUPRENORPHINE
  117. CALCIUM [Concomitant]
     Active Substance: CALCIUM
     Indication: Product used for unknown indication
  118. CALCIUM ASCORBATE [Concomitant]
     Active Substance: CALCIUM ASCORBATE
     Indication: Product used for unknown indication
  119. CALCIUM ASCORBATE [Concomitant]
     Active Substance: CALCIUM ASCORBATE
  120. CALCIUM ASCORBATE [Concomitant]
     Active Substance: CALCIUM ASCORBATE
  121. CALCIUM CITRATE [Concomitant]
     Active Substance: CALCIUM CITRATE
     Indication: Product used for unknown indication
  122. CALCIUM GLUBIONATE [Concomitant]
     Active Substance: CALCIUM GLUBIONATE
     Indication: Product used for unknown indication
  123. CALCIUM GLUBIONATE [Concomitant]
     Active Substance: CALCIUM GLUBIONATE
     Route: 016
  124. CALCIUM GLUBIONATE [Concomitant]
     Active Substance: CALCIUM GLUBIONATE
  125. CANDESARTAN [Concomitant]
     Active Substance: CANDESARTAN
     Indication: Rheumatoid arthritis
  126. CANDESARTAN [Concomitant]
     Active Substance: CANDESARTAN
     Indication: Migraine
     Route: 048
  127. CANDESARTAN [Concomitant]
     Active Substance: CANDESARTAN
  128. CELECOXIB [Concomitant]
     Active Substance: CELECOXIB
     Indication: Product used for unknown indication
  129. CELECOXIB [Concomitant]
     Active Substance: CELECOXIB
  130. CELECOXIB [Concomitant]
     Active Substance: CELECOXIB
  131. CELECOXIB [Concomitant]
     Active Substance: CELECOXIB
  132. CELECOXIB [Concomitant]
     Active Substance: CELECOXIB
     Route: 048
  133. CELECOXIB [Concomitant]
     Active Substance: CELECOXIB
  134. CELECOXIB [Concomitant]
     Active Substance: CELECOXIB
     Route: 048
  135. CELECOXIB [Concomitant]
     Active Substance: CELECOXIB
  136. CETIRIZINE [Concomitant]
     Active Substance: CETIRIZINE HYDROCHLORIDE
     Indication: Rheumatoid arthritis
  137. CETIRIZINE [Concomitant]
     Active Substance: CETIRIZINE HYDROCHLORIDE
  138. CETIRIZINE [Concomitant]
     Active Substance: CETIRIZINE HYDROCHLORIDE
     Route: 048
  139. CETIRIZINE [Concomitant]
     Active Substance: CETIRIZINE HYDROCHLORIDE
     Route: 048
  140. CETIRIZINE [Concomitant]
     Active Substance: CETIRIZINE HYDROCHLORIDE
  141. CETIRIZINE [Concomitant]
     Active Substance: CETIRIZINE HYDROCHLORIDE
  142. CETIRIZINE [Concomitant]
     Active Substance: CETIRIZINE HYDROCHLORIDE
  143. CETIRIZINE [Concomitant]
     Active Substance: CETIRIZINE HYDROCHLORIDE
  144. CETIRIZINE [Concomitant]
     Active Substance: CETIRIZINE HYDROCHLORIDE
  145. CETIRIZINE [Concomitant]
     Active Substance: CETIRIZINE HYDROCHLORIDE
  146. CHLORHEXIDINE GLUCONATE [Concomitant]
     Active Substance: CHLORHEXIDINE GLUCONATE
     Indication: Rheumatoid arthritis
  147. CHLORHEXIDINE GLUCONATE [Concomitant]
     Active Substance: CHLORHEXIDINE GLUCONATE
     Route: 061
  148. CHLORHEXIDINE GLUCONATE [Concomitant]
     Active Substance: CHLORHEXIDINE GLUCONATE
  149. CHOLECALCIFEROL [Concomitant]
     Active Substance: CHOLECALCIFEROL
     Indication: Product used for unknown indication
  150. CIMZIA [Concomitant]
     Active Substance: CERTOLIZUMAB PEGOL
     Indication: Rheumatoid arthritis
     Route: 058
  151. CIMZIA [Concomitant]
     Active Substance: CERTOLIZUMAB PEGOL
     Route: 058
  152. CIMZIA [Concomitant]
     Active Substance: CERTOLIZUMAB PEGOL
     Route: 058
  153. CIMZIA [Concomitant]
     Active Substance: CERTOLIZUMAB PEGOL
     Route: 058
  154. CIMZIA [Concomitant]
     Active Substance: CERTOLIZUMAB PEGOL
     Route: 058
  155. CORTISONE ACETATE [Concomitant]
     Active Substance: CORTISONE ACETATE
     Indication: Rheumatoid arthritis
  156. CORTISONE ACETATE [Concomitant]
     Active Substance: CORTISONE ACETATE
  157. CORTISONE ACETATE [Concomitant]
     Active Substance: CORTISONE ACETATE
     Route: 061
  158. CORTISONE ACETATE [Concomitant]
     Active Substance: CORTISONE ACETATE
  159. CORTISONE ACETATE [Concomitant]
     Active Substance: CORTISONE ACETATE
  160. COSENTYX [Concomitant]
     Active Substance: SECUKINUMAB
     Indication: Rheumatoid arthritis
  161. COSENTYX [Concomitant]
     Active Substance: SECUKINUMAB
     Indication: Psoriatic arthropathy
  162. COSENTYX [Concomitant]
     Active Substance: SECUKINUMAB
  163. COSENTYX [Concomitant]
     Active Substance: SECUKINUMAB
  164. DESOXIMETASONE [Concomitant]
     Active Substance: DESOXIMETASONE
     Indication: Rheumatoid arthritis
  165. DESOXIMETASONE [Concomitant]
     Active Substance: DESOXIMETASONE
     Route: 058
  166. DESOXIMETASONE [Concomitant]
     Active Substance: DESOXIMETASONE
     Route: 058
  167. DESOXIMETASONE [Concomitant]
     Active Substance: DESOXIMETASONE
     Route: 058
  168. DESOXIMETASONE [Concomitant]
     Active Substance: DESOXIMETASONE
  169. DICLOFENAC SODIUM [Concomitant]
     Active Substance: DICLOFENAC SODIUM
     Indication: Rheumatoid arthritis
     Route: 058
  170. DICLOFENAC SODIUM [Concomitant]
     Active Substance: DICLOFENAC SODIUM
  171. DICLOFENAC SODIUM [Concomitant]
     Active Substance: DICLOFENAC SODIUM
  172. DICLOFENAC SODIUM [Concomitant]
     Active Substance: DICLOFENAC SODIUM
  173. DICLOFENAC SODIUM [Concomitant]
     Active Substance: DICLOFENAC SODIUM
  174. DICLOFENAC SODIUM [Concomitant]
     Active Substance: DICLOFENAC SODIUM
     Route: 058
  175. DICLOFENAC SODIUM [Concomitant]
     Active Substance: DICLOFENAC SODIUM
  176. DOMPERIDONE MALEATE [Concomitant]
     Active Substance: DOMPERIDONE MALEATE
     Indication: Product used for unknown indication
  177. DOMPERIDONE MALEATE [Concomitant]
     Active Substance: DOMPERIDONE MALEATE
  178. ENBREL [Concomitant]
     Active Substance: ETANERCEPT
     Indication: Rheumatoid arthritis
     Route: 058
  179. ENBREL [Concomitant]
     Active Substance: ETANERCEPT
     Route: 058
  180. ENBREL [Concomitant]
     Active Substance: ETANERCEPT
     Route: 058
  181. ENBREL [Concomitant]
     Active Substance: ETANERCEPT
     Route: 058
  182. ENBREL [Concomitant]
     Active Substance: ETANERCEPT
     Route: 058
  183. ENBREL [Concomitant]
     Active Substance: ETANERCEPT
  184. ENBREL [Concomitant]
     Active Substance: ETANERCEPT
  185. ENBREL [Concomitant]
     Active Substance: ETANERCEPT
     Route: 058
  186. ENBREL [Concomitant]
     Active Substance: ETANERCEPT
     Route: 058
  187. ENBREL [Concomitant]
     Active Substance: ETANERCEPT
     Route: 058
  188. ENBREL [Concomitant]
     Active Substance: ETANERCEPT
  189. ENBREL [Concomitant]
     Active Substance: ETANERCEPT
     Route: 058
  190. ERELZI [Concomitant]
     Active Substance: ETANERCEPT-SZZS
     Indication: Rheumatoid arthritis
     Route: 048
  191. ERELZI [Concomitant]
     Active Substance: ETANERCEPT-SZZS
  192. ERELZI [Concomitant]
     Active Substance: ETANERCEPT-SZZS
     Route: 058
  193. ERELZI [Concomitant]
     Active Substance: ETANERCEPT-SZZS
     Route: 058
  194. ERELZI [Concomitant]
     Active Substance: ETANERCEPT-SZZS
     Route: 058
  195. ERELZI [Concomitant]
     Active Substance: ETANERCEPT-SZZS
  196. ERGOCALCIFEROL [Concomitant]
     Active Substance: ERGOCALCIFEROL
     Indication: Product used for unknown indication
  197. ERGOCALCIFEROL [Concomitant]
     Active Substance: ERGOCALCIFEROL
  198. FLUMETHASONE [Concomitant]
     Active Substance: FLUMETHASONE
     Indication: Product used for unknown indication
  199. FLUMETHASONE PIVALATE [Concomitant]
     Active Substance: FLUMETHASONE PIVALATE
     Indication: Product used for unknown indication
     Route: 003
  200. FOLIC ACID [Concomitant]
     Active Substance: FOLIC ACID
     Indication: Rheumatoid arthritis
     Route: 058
  201. FOLIC ACID [Concomitant]
     Active Substance: FOLIC ACID
  202. FOLIC ACID [Concomitant]
     Active Substance: FOLIC ACID
  203. FOLIC ACID [Concomitant]
     Active Substance: FOLIC ACID
     Route: 048
  204. FOLIC ACID [Concomitant]
     Active Substance: FOLIC ACID
     Route: 058
  205. FOLIC ACID [Concomitant]
     Active Substance: FOLIC ACID
     Route: 048
  206. FOLIC ACID [Concomitant]
     Active Substance: FOLIC ACID
  207. FOLIC ACID [Concomitant]
     Active Substance: FOLIC ACID
  208. FOLIC ACID [Concomitant]
     Active Substance: FOLIC ACID
  209. FOLIC ACID [Concomitant]
     Active Substance: FOLIC ACID
     Route: 048
  210. FOLIC ACID [Concomitant]
     Active Substance: FOLIC ACID
     Route: 048
  211. FOLIC ACID [Concomitant]
     Active Substance: FOLIC ACID
     Route: 048
  212. FOLIC ACID [Concomitant]
     Active Substance: FOLIC ACID
  213. FOLIC ACID [Concomitant]
     Active Substance: FOLIC ACID
     Route: 048
  214. FOLIC ACID [Concomitant]
     Active Substance: FOLIC ACID
     Route: 048
  215. FOLIC ACID [Concomitant]
     Active Substance: FOLIC ACID
  216. FOLIC ACID [Concomitant]
     Active Substance: FOLIC ACID
  217. FOLIC ACID [Concomitant]
     Active Substance: FOLIC ACID
  218. FOLIC ACID [Concomitant]
     Active Substance: FOLIC ACID
  219. FOLIC ACID [Concomitant]
     Active Substance: FOLIC ACID
  220. FOLIC ACID [Concomitant]
     Active Substance: FOLIC ACID
     Route: 058
  221. FOLIC ACID [Concomitant]
     Active Substance: FOLIC ACID
  222. FOSAMAX [Concomitant]
     Active Substance: ALENDRONATE SODIUM
     Indication: Rheumatoid arthritis
     Route: 058
  223. FOSAMAX [Concomitant]
     Active Substance: ALENDRONATE SODIUM
     Route: 016
  224. FOSAMAX [Concomitant]
     Active Substance: ALENDRONATE SODIUM
     Route: 048
  225. GOLD [Concomitant]
     Active Substance: GOLD
     Indication: Product used for unknown indication
  226. HAIR KERATIN AMINO ACIDS GOLD COMPLEX [Concomitant]
     Active Substance: HAIR KERATIN AMINO ACIDS GOLD COMPLEX
     Indication: Product used for unknown indication
  227. GOLD SODIUM THIOMALATE [Concomitant]
     Active Substance: GOLD SODIUM THIOMALATE
     Indication: Product used for unknown indication
     Route: 030
  228. GOLD SODIUM THIOMALATE [Concomitant]
     Active Substance: GOLD SODIUM THIOMALATE
     Route: 030
  229. GOLD SODIUM THIOMALATE [Concomitant]
     Active Substance: GOLD SODIUM THIOMALATE
  230. HUMIRA [Concomitant]
     Active Substance: ADALIMUMAB
     Indication: Rheumatoid arthritis
     Route: 058
  231. HUMIRA [Concomitant]
     Active Substance: ADALIMUMAB
     Route: 058
  232. HUMIRA [Concomitant]
     Active Substance: ADALIMUMAB
     Route: 058
  233. HUMIRA [Concomitant]
     Active Substance: ADALIMUMAB
  234. HUMIRA [Concomitant]
     Active Substance: ADALIMUMAB
     Route: 058
  235. HUMIRA [Concomitant]
     Active Substance: ADALIMUMAB
     Route: 057
  236. HUMIRA [Concomitant]
     Active Substance: ADALIMUMAB
  237. HUMIRA [Concomitant]
     Active Substance: ADALIMUMAB
     Route: 058
  238. HYDROCORTISONE [Concomitant]
     Active Substance: HYDROCORTISONE
     Indication: Product used for unknown indication
  239. HYDROCORTISONE [Concomitant]
     Active Substance: HYDROCORTISONE
  240. HYDROCORTISONE PROBUTATE [Concomitant]
     Active Substance: HYDROCORTISONE PROBUTATE
     Indication: Rheumatoid arthritis
  241. HYDROCORTISONE PROBUTATE [Concomitant]
     Active Substance: HYDROCORTISONE PROBUTATE
  242. INFLIXIMAB [Concomitant]
     Active Substance: INFLIXIMAB
     Indication: Rheumatoid arthritis
  243. INFLIXIMAB [Concomitant]
     Active Substance: INFLIXIMAB
     Route: 042
  244. INFLIXIMAB [Concomitant]
     Active Substance: INFLIXIMAB
     Route: 042
  245. INFLIXIMAB [Concomitant]
     Active Substance: INFLIXIMAB
     Route: 042
  246. INFLIXIMAB [Concomitant]
     Active Substance: INFLIXIMAB
  247. INFLIXIMAB [Concomitant]
     Active Substance: INFLIXIMAB
     Route: 042
  248. INFLIXIMAB [Concomitant]
     Active Substance: INFLIXIMAB
     Route: 042
  249. INFLIXIMAB [Concomitant]
     Active Substance: INFLIXIMAB
     Route: 042
  250. INFLIXIMAB [Concomitant]
     Active Substance: INFLIXIMAB
     Route: 042
  251. INFLIXIMAB [Concomitant]
     Active Substance: INFLIXIMAB
     Route: 042
  252. INFLIXIMAB [Concomitant]
     Active Substance: INFLIXIMAB
     Route: 058
  253. ISOPROPYL ALCOHOL [Concomitant]
     Active Substance: ISOPROPYL ALCOHOL
     Indication: Rheumatoid arthritis
     Route: 061
  254. ISOPROPYL ALCOHOL [Concomitant]
     Active Substance: ISOPROPYL ALCOHOL
     Route: 061
  255. KEVZARA [Concomitant]
     Active Substance: SARILUMAB
     Indication: Product used for unknown indication
  256. LAMICTAL [Concomitant]
     Active Substance: LAMOTRIGINE
     Indication: Product used for unknown indication
     Route: 048
  257. LAMICTAL [Concomitant]
     Active Substance: LAMOTRIGINE
     Route: 048
  258. LAMICTAL [Concomitant]
     Active Substance: LAMOTRIGINE
     Route: 048
  259. LAMICTAL [Concomitant]
     Active Substance: LAMOTRIGINE
     Route: 048
  260. LAMICTAL [Concomitant]
     Active Substance: LAMOTRIGINE
     Route: 048
  261. LAMICTAL [Concomitant]
     Active Substance: LAMOTRIGINE
     Route: 048
  262. LAMICTAL [Concomitant]
     Active Substance: LAMOTRIGINE
     Route: 048
  263. LAMICTAL [Concomitant]
     Active Substance: LAMOTRIGINE
     Route: 048
  264. LAMICTAL [Concomitant]
     Active Substance: LAMOTRIGINE
     Route: 048
  265. LEFLUNOMIDE [Concomitant]
     Active Substance: LEFLUNOMIDE
     Indication: Rheumatoid arthritis
  266. LEFLUNOMIDE [Concomitant]
     Active Substance: LEFLUNOMIDE
  267. LEFLUNOMIDE [Concomitant]
     Active Substance: LEFLUNOMIDE
  268. LEFLUNOMIDE [Concomitant]
     Active Substance: LEFLUNOMIDE
     Route: 048
  269. LEFLUNOMIDE [Concomitant]
     Active Substance: LEFLUNOMIDE
  270. MAGNESIUM CITRATE [Concomitant]
     Active Substance: MAGNESIUM CITRATE
     Indication: Product used for unknown indication
  271. METFORMIN HYDROCHLORIDE [Concomitant]
     Active Substance: METFORMIN HYDROCHLORIDE
     Indication: Product used for unknown indication
  272. METFORMIN HYDROCHLORIDE [Concomitant]
     Active Substance: METFORMIN HYDROCHLORIDE
     Route: 042
  273. METFORMIN HYDROCHLORIDE [Concomitant]
     Active Substance: METFORMIN HYDROCHLORIDE
  274. METHOTREXATE [Concomitant]
     Active Substance: METHOTREXATE
     Indication: Rheumatoid arthritis
     Route: 016
  275. METHOTREXATE [Concomitant]
     Active Substance: METHOTREXATE
     Route: 058
  276. METHOTREXATE [Concomitant]
     Active Substance: METHOTREXATE
  277. METHOTREXATE [Concomitant]
     Active Substance: METHOTREXATE
     Route: 048
  278. METHOTREXATE [Concomitant]
     Active Substance: METHOTREXATE
  279. METHOTREXATE [Concomitant]
     Active Substance: METHOTREXATE
  280. METHOTREXATE [Concomitant]
     Active Substance: METHOTREXATE
  281. METHOTREXATE [Concomitant]
     Active Substance: METHOTREXATE
     Route: 048
  282. METHOTREXATE [Concomitant]
     Active Substance: METHOTREXATE
     Route: 013
  283. METHOTREXATE [Concomitant]
     Active Substance: METHOTREXATE
  284. METHOTREXATE [Concomitant]
     Active Substance: METHOTREXATE
  285. METHOTREXATE [Concomitant]
     Active Substance: METHOTREXATE
     Route: 048
  286. METHOTREXATE [Concomitant]
     Active Substance: METHOTREXATE
     Route: 048
  287. METHOTREXATE [Concomitant]
     Active Substance: METHOTREXATE
     Route: 058
  288. METHOTREXATE [Concomitant]
     Active Substance: METHOTREXATE
     Route: 048
  289. METHOTREXATE [Concomitant]
     Active Substance: METHOTREXATE
     Route: 048
  290. METHOTREXATE [Concomitant]
     Active Substance: METHOTREXATE
     Route: 048
  291. METHOTREXATE [Concomitant]
     Active Substance: METHOTREXATE
     Route: 058
  292. METHOTREXATE [Concomitant]
     Active Substance: METHOTREXATE
     Route: 058
  293. METHOTREXATE [Concomitant]
     Active Substance: METHOTREXATE
     Route: 013
  294. METHOTREXATE [Concomitant]
     Active Substance: METHOTREXATE
     Route: 048
  295. METHOTREXATE [Concomitant]
     Active Substance: METHOTREXATE
     Route: 048
  296. METHOTREXATE [Concomitant]
     Active Substance: METHOTREXATE
     Route: 048
  297. METHOTREXATE [Concomitant]
     Active Substance: METHOTREXATE
     Route: 048
  298. METHOTREXATE [Concomitant]
     Active Substance: METHOTREXATE
  299. METHYLPREDNISOLONE [Concomitant]
     Active Substance: METHYLPREDNISOLONE
     Indication: Product used for unknown indication
  300. METHYLPREDNISOLONE [Concomitant]
     Active Substance: METHYLPREDNISOLONE
  301. METHYLPREDNISOLONE SODIUM SUCCINATE [Concomitant]
     Active Substance: METHYLPREDNISOLONE SODIUM SUCCINATE
     Indication: Product used for unknown indication
  302. MINOCYCLINE HYDROCHLORIDE [Concomitant]
     Active Substance: MINOCYCLINE HYDROCHLORIDE
     Indication: Rheumatoid arthritis
  303. MINOCYCLINE HYDROCHLORIDE [Concomitant]
     Active Substance: MINOCYCLINE HYDROCHLORIDE
  304. MINOCYCLINE HYDROCHLORIDE [Concomitant]
     Active Substance: MINOCYCLINE HYDROCHLORIDE
  305. MINOCYCLINE HYDROCHLORIDE [Concomitant]
     Active Substance: MINOCYCLINE HYDROCHLORIDE
  306. MYOCHRYSINE [Concomitant]
     Active Substance: GOLD SODIUM THIOMALATE
     Indication: Rheumatoid arthritis
     Route: 030
  307. MYOCHRYSINE [Concomitant]
     Active Substance: GOLD SODIUM THIOMALATE
     Route: 030
  308. MYRBETRIQ [Concomitant]
     Active Substance: MIRABEGRON
     Indication: Product used for unknown indication
  309. MYRBETRIQ [Concomitant]
     Active Substance: MIRABEGRON
  310. MYRBETRIQ [Concomitant]
     Active Substance: MIRABEGRON
  311. MYRBETRIQ [Concomitant]
     Active Substance: MIRABEGRON
  312. MYRBETRIQ [Concomitant]
     Active Substance: MIRABEGRON
     Dosage: TABLET (EXTENDED- RELEASE)
  313. NAPROXEN [Concomitant]
     Active Substance: NAPROXEN
     Indication: Product used for unknown indication
  314. NAPROXEN [Concomitant]
     Active Substance: NAPROXEN
  315. NAPROXEN [Concomitant]
     Active Substance: NAPROXEN
     Indication: Product used for unknown indication
  316. NAPROXEN SODIUM [Concomitant]
     Active Substance: NAPROXEN SODIUM
     Indication: Rheumatoid arthritis
  317. NAPROXEN SODIUM [Concomitant]
     Active Substance: NAPROXEN SODIUM
  318. NAPROXEN SODIUM [Concomitant]
     Active Substance: NAPROXEN SODIUM
  319. NICOTINAMIDE [Concomitant]
     Active Substance: NIACINAMIDE
     Indication: Product used for unknown indication
  320. NICOTINAMIDE [Concomitant]
     Active Substance: NIACINAMIDE
  321. NUCALA [Concomitant]
     Active Substance: MEPOLIZUMAB
     Indication: Product used for unknown indication
  322. NUCALA [Concomitant]
     Active Substance: MEPOLIZUMAB
  323. OXYCODONE [Concomitant]
     Active Substance: OXYCODONE
     Indication: Product used for unknown indication
  324. OXYCODONE TEREPHTHALATE [Concomitant]
     Active Substance: OXYCODONE TEREPHTHALATE
     Indication: Product used for unknown indication
  325. PERIOGARD [Concomitant]
     Active Substance: CHLORHEXIDINE GLUCONATE
     Indication: Product used for unknown indication
  326. PHENYLEPHRINE HYDROCHLORIDE [Concomitant]
     Active Substance: PHENYLEPHRINE HYDROCHLORIDE
     Indication: Product used for unknown indication
  327. PHENYLEPHRINE HYDROCHLORIDE [Concomitant]
     Active Substance: PHENYLEPHRINE HYDROCHLORIDE
  328. PHTHALYLSULFATHIAZOLE [Concomitant]
     Active Substance: PHTHALYLSULFATHIAZOLE
     Indication: Rheumatoid arthritis
     Route: 048
  329. PHTHALYLSULFATHIAZOLE [Concomitant]
     Active Substance: PHTHALYLSULFATHIAZOLE
  330. PHTHALYLSULFATHIAZOLE [Concomitant]
     Active Substance: PHTHALYLSULFATHIAZOLE
  331. PHTHALYLSULFATHIAZOLE [Concomitant]
     Active Substance: PHTHALYLSULFATHIAZOLE
  332. PHTHALYLSULFATHIAZOLE [Concomitant]
     Active Substance: PHTHALYLSULFATHIAZOLE
     Route: 048
  333. PHTHALYLSULFATHIAZOLE [Concomitant]
     Active Substance: PHTHALYLSULFATHIAZOLE
  334. PHTHALYLSULFATHIAZOLE [Concomitant]
     Active Substance: PHTHALYLSULFATHIAZOLE
     Route: 058
  335. PHTHALYLSULFATHIAZOLE [Concomitant]
     Active Substance: PHTHALYLSULFATHIAZOLE
  336. HYDROXYCHLOROQUINE DIPHOSPHATE [Concomitant]
     Active Substance: HYDROXYCHLOROQUINE DIPHOSPHATE
     Indication: Rheumatoid arthritis
  337. PREDNISONE [Concomitant]
     Active Substance: PREDNISONE
     Indication: Rheumatoid arthritis
     Route: 048
  338. PREDNISONE [Concomitant]
     Active Substance: PREDNISONE
  339. PREDNISONE [Concomitant]
     Active Substance: PREDNISONE
  340. PREDNISONE [Concomitant]
     Active Substance: PREDNISONE
  341. PREDNISONE [Concomitant]
     Active Substance: PREDNISONE
     Route: 048
  342. PREDNISONE [Concomitant]
     Active Substance: PREDNISONE
  343. PREDNISONE [Concomitant]
     Active Substance: PREDNISONE
  344. PREDNISONE [Concomitant]
     Active Substance: PREDNISONE
     Route: 048
  345. PREDNISONE [Concomitant]
     Active Substance: PREDNISONE
  346. PSEUDOEPHEDRINE [Concomitant]
     Active Substance: PSEUDOEPHEDRINE
     Indication: Product used for unknown indication
  347. PSEUDOEPHEDRINE HYDROCHLORIDE [Concomitant]
     Active Substance: PSEUDOEPHEDRINE HYDROCHLORIDE
     Indication: Rheumatoid arthritis
  348. PSEUDOEPHEDRINE HYDROCHLORIDE [Concomitant]
     Active Substance: PSEUDOEPHEDRINE HYDROCHLORIDE
  349. PSEUDOEPHEDRINE HYDROCHLORIDE [Concomitant]
     Active Substance: PSEUDOEPHEDRINE HYDROCHLORIDE
  350. PSEUDOEPHEDRINE HYDROCHLORIDE [Concomitant]
     Active Substance: PSEUDOEPHEDRINE HYDROCHLORIDE
  351. RAMIPRIL [Concomitant]
     Active Substance: RAMIPRIL
     Indication: Rheumatoid arthritis
  352. RAMIPRIL [Concomitant]
     Active Substance: RAMIPRIL
     Route: 016
  353. RAMIPRIL [Concomitant]
     Active Substance: RAMIPRIL
  354. RANITIDINE [Concomitant]
     Active Substance: RANITIDINE
     Indication: Product used for unknown indication
  355. CETIRIZINE HYDROCHLORIDE\PSEUDOEPHEDRINE HYDROCHLORIDE [Concomitant]
     Active Substance: CETIRIZINE HYDROCHLORIDE\PSEUDOEPHEDRINE HYDROCHLORIDE
     Indication: Rheumatoid arthritis
  356. CETIRIZINE HYDROCHLORIDE\PSEUDOEPHEDRINE HYDROCHLORIDE [Concomitant]
     Active Substance: CETIRIZINE HYDROCHLORIDE\PSEUDOEPHEDRINE HYDROCHLORIDE
  357. CETIRIZINE HYDROCHLORIDE\PSEUDOEPHEDRINE HYDROCHLORIDE [Concomitant]
     Active Substance: CETIRIZINE HYDROCHLORIDE\PSEUDOEPHEDRINE HYDROCHLORIDE
  358. CETIRIZINE HYDROCHLORIDE\PSEUDOEPHEDRINE HYDROCHLORIDE [Concomitant]
     Active Substance: CETIRIZINE HYDROCHLORIDE\PSEUDOEPHEDRINE HYDROCHLORIDE
  359. CETIRIZINE HYDROCHLORIDE\PSEUDOEPHEDRINE HYDROCHLORIDE [Concomitant]
     Active Substance: CETIRIZINE HYDROCHLORIDE\PSEUDOEPHEDRINE HYDROCHLORIDE
  360. CETIRIZINE HYDROCHLORIDE\PSEUDOEPHEDRINE HYDROCHLORIDE [Concomitant]
     Active Substance: CETIRIZINE HYDROCHLORIDE\PSEUDOEPHEDRINE HYDROCHLORIDE
  361. CETIRIZINE HYDROCHLORIDE\PSEUDOEPHEDRINE HYDROCHLORIDE [Concomitant]
     Active Substance: CETIRIZINE HYDROCHLORIDE\PSEUDOEPHEDRINE HYDROCHLORIDE
  362. CETIRIZINE HYDROCHLORIDE\PSEUDOEPHEDRINE HYDROCHLORIDE [Concomitant]
     Active Substance: CETIRIZINE HYDROCHLORIDE\PSEUDOEPHEDRINE HYDROCHLORIDE
  363. REMICADE [Concomitant]
     Active Substance: INFLIXIMAB
     Indication: Product used for unknown indication
     Route: 058
  364. REMICADE [Concomitant]
     Active Substance: INFLIXIMAB
  365. REMICADE [Concomitant]
     Active Substance: INFLIXIMAB
  366. REMICADE [Concomitant]
     Active Substance: INFLIXIMAB
  367. REMICADE [Concomitant]
     Active Substance: INFLIXIMAB
  368. REMICADE [Concomitant]
     Active Substance: INFLIXIMAB
  369. REMICADE [Concomitant]
     Active Substance: INFLIXIMAB
  370. REMICADE [Concomitant]
     Active Substance: INFLIXIMAB
     Route: 042
  371. REMICADE [Concomitant]
     Active Substance: INFLIXIMAB
     Route: 058
  372. RIBOFLAVIN [Concomitant]
     Active Substance: RIBOFLAVIN
     Indication: Product used for unknown indication
  373. RIBOFLAVIN [Concomitant]
     Active Substance: RIBOFLAVIN
  374. RITUXIMAB [Concomitant]
     Active Substance: RITUXIMAB
     Indication: Rheumatoid arthritis
  375. RITUXIMAB [Concomitant]
     Active Substance: RITUXIMAB
  376. RITUXIMAB [Concomitant]
     Active Substance: RITUXIMAB
     Route: 058
  377. RITUXIMAB [Concomitant]
     Active Substance: RITUXIMAB
     Route: 043
  378. RITUXIMAB [Concomitant]
     Active Substance: RITUXIMAB
  379. RITUXIMAB [Concomitant]
     Active Substance: RITUXIMAB
     Route: 042
  380. RITUXIMAB [Concomitant]
     Active Substance: RITUXIMAB
  381. RITUXIMAB [Concomitant]
     Active Substance: RITUXIMAB
     Route: 042
  382. RITUXIMAB [Concomitant]
     Active Substance: RITUXIMAB
     Route: 016
  383. RITUXIMAB [Concomitant]
     Active Substance: RITUXIMAB
  384. RITUXIMAB [Concomitant]
     Active Substance: RITUXIMAB
  385. RITUXIMAB [Concomitant]
     Active Substance: RITUXIMAB
  386. RITUXIMAB [Concomitant]
     Active Substance: RITUXIMAB
  387. RITUXIMAB [Concomitant]
     Active Substance: RITUXIMAB
  388. RITUXIMAB [Concomitant]
     Active Substance: RITUXIMAB
  389. RITUXIMAB [Concomitant]
     Active Substance: RITUXIMAB
  390. RITUXIMAB [Concomitant]
     Active Substance: RITUXIMAB
     Route: 042
  391. RITUXIMAB [Concomitant]
     Active Substance: RITUXIMAB
     Route: 042
  392. RITUXIMAB [Concomitant]
     Active Substance: RITUXIMAB
     Route: 042
  393. RITUXIMAB [Concomitant]
     Active Substance: RITUXIMAB
     Route: 058
  394. RITUXIMAB [Concomitant]
     Active Substance: RITUXIMAB
  395. RITUXIMAB [Concomitant]
     Active Substance: RITUXIMAB
     Route: 043
  396. RITUXIMAB [Concomitant]
     Active Substance: RITUXIMAB
     Route: 040
  397. RITUXIMAB [Concomitant]
     Active Substance: RITUXIMAB
     Route: 042
  398. RITUXIMAB [Concomitant]
     Active Substance: RITUXIMAB
  399. RITUXIMAB [Concomitant]
     Active Substance: RITUXIMAB
     Route: 016
  400. RITUXIMAB [Concomitant]
     Active Substance: RITUXIMAB
     Route: 016
  401. RITUXIMAB [Concomitant]
     Active Substance: RITUXIMAB
     Route: 058
  402. RITUXIMAB [Concomitant]
     Active Substance: RITUXIMAB
  403. SALAZOPYRINE [Concomitant]
     Active Substance: SULFASALAZINE
     Indication: Rheumatoid arthritis
  404. SIMPONI [Concomitant]
     Active Substance: GOLIMUMAB
     Indication: Rheumatoid arthritis
     Route: 058
  405. SIMPONI [Concomitant]
     Active Substance: GOLIMUMAB
     Indication: Psoriatic arthropathy
  406. SIMPONI [Concomitant]
     Active Substance: GOLIMUMAB
  407. SIMPONI [Concomitant]
     Active Substance: GOLIMUMAB
     Route: 058
  408. SIRUKUMAB [Concomitant]
     Active Substance: SIRUKUMAB
     Indication: Product used for unknown indication
  409. SIRUKUMAB [Concomitant]
     Active Substance: SIRUKUMAB
  410. SIRUKUMAB [Concomitant]
     Active Substance: SIRUKUMAB
  411. SIRUKUMAB [Concomitant]
     Active Substance: SIRUKUMAB
  412. GOLD SODIUM THIOMALATE [Concomitant]
     Active Substance: GOLD SODIUM THIOMALATE
     Indication: Rheumatoid arthritis
  413. GOLD SODIUM THIOMALATE [Concomitant]
     Active Substance: GOLD SODIUM THIOMALATE
  414. STELARA [Concomitant]
     Active Substance: USTEKINUMAB
     Indication: Product used for unknown indication
     Route: 058
  415. SULFASALAZINE [Concomitant]
     Active Substance: SULFASALAZINE
     Indication: Product used for unknown indication
  416. TETRACYCLINE HYDROCHLORIDE [Concomitant]
     Active Substance: TETRACYCLINE HYDROCHLORIDE
     Indication: Rheumatoid arthritis
  417. TOFACITINIB [Concomitant]
     Active Substance: TOFACITINIB
     Indication: Rheumatoid arthritis
  418. TOFACITINIB CITRATE [Concomitant]
     Active Substance: TOFACITINIB CITRATE
     Indication: Rheumatoid arthritis
     Route: 048
  419. TOFACITINIB CITRATE [Concomitant]
     Active Substance: TOFACITINIB CITRATE
  420. TOPIRAMATE [Concomitant]
     Active Substance: TOPIRAMATE
     Indication: Product used for unknown indication
  421. TOPIRAMATE [Concomitant]
     Active Substance: TOPIRAMATE
  422. TOPIRAMATE [Concomitant]
     Active Substance: TOPIRAMATE
  423. TOPIRAMATE [Concomitant]
     Active Substance: TOPIRAMATE
  424. TOPIRAMATE [Concomitant]
     Active Substance: TOPIRAMATE
  425. VITAMIN C [Concomitant]
     Active Substance: ASCORBIC ACID
     Indication: Product used for unknown indication
  426. XELJANZ [Concomitant]
     Active Substance: TOFACITINIB CITRATE
     Indication: Product used for unknown indication
  427. XELJANZ [Concomitant]
     Active Substance: TOFACITINIB CITRATE
  428. XELJANZ [Concomitant]
     Active Substance: TOFACITINIB CITRATE
  429. XELJANZ [Concomitant]
     Active Substance: TOFACITINIB CITRATE
     Route: 048
  430. XELJANZ [Concomitant]
     Active Substance: TOFACITINIB CITRATE
  431. XELJANZ [Concomitant]
     Active Substance: TOFACITINIB CITRATE
     Route: 048
  432. XELJANZ [Concomitant]
     Active Substance: TOFACITINIB CITRATE
     Route: 048
  433. XELJANZ [Concomitant]
     Active Substance: TOFACITINIB CITRATE
  434. XELJANZ [Concomitant]
     Active Substance: TOFACITINIB CITRATE
     Route: 042
  435. ZINC [Concomitant]
     Active Substance: ZINC
     Indication: Product used for unknown indication
     Route: 040

REACTIONS (13)
  - Blister [Unknown]
  - Blood cholesterol increased [Unknown]
  - Breast cancer stage III [Unknown]
  - Synovitis [Unknown]
  - Systemic lupus erythematosus [Unknown]
  - Type 2 diabetes mellitus [Unknown]
  - Urticaria [Unknown]
  - Vomiting [Unknown]
  - Weight increased [Unknown]
  - Wheezing [Unknown]
  - Wound [Unknown]
  - Adverse event [Unknown]
  - Hospitalisation [Unknown]
